FAERS Safety Report 9929988 (Version 1)
Quarter: 2014Q1

REPORT INFORMATION
  Report Type: Spontaneous
  Country: US (occurrence: US)
  Receive Date: 20140227
  Receipt Date: 20140227
  Transmission Date: 20141002
  Serious: No
  Sender: FDA-Public Use
  Company Number: US-AMGEN-USASP2013070842

PATIENT
  Age: 2 Year
  Sex: Female
  Weight: 13.61 kg

DRUGS (1)
  1. ENBREL [Suspect]
     Indication: PSORIATIC ARTHROPATHY
     Dosage: 12.5 MG, 2 TIMES/WK
     Route: 058

REACTIONS (2)
  - Pyrexia [Unknown]
  - Nasopharyngitis [Unknown]
